FAERS Safety Report 7365988-8 (Version None)
Quarter: 2011Q1

REPORT INFORMATION
  Report Type: 
  Country: None (occurrence: None)
  Receive Date: 20110311
  Receipt Date: 20110304
  Transmission Date: 20110831
  Serious: Yes (Other)
  Sender: FDA-Public Use
  Company Number: WAES 0910USA01303

PATIENT
  Age: 39 Year
  Sex: Male

DRUGS (4)
  1. TAB RALTEGRAVIR POTASSIUM [Suspect]
     Indication: HIV INFECTION
     Dosage: (400 MG/BID) (400 MG/BID)
     Route: 048
     Dates: start: 20090820, end: 20100309
  2. TAB RALTEGRAVIR POTASSIUM [Suspect]
     Indication: HIV INFECTION
     Dosage: (400 MG/BID) (400 MG/BID)
     Route: 048
     Dates: start: 20100316
  3. LAMIVUDINE AND ZIDOVUDINE [Suspect]
     Indication: HIV INFECTION
     Dosage: 1 TAB/BID
     Route: 048
     Dates: start: 20090820
  4. LOPINAVIR AND RITONAVIR [Suspect]
     Indication: HIV INFECTION
     Dosage: 1 TAB/BID
     Route: 048
     Dates: start: 20090820

REACTIONS (10)
  - IMMUNE RECONSTITUTION SYNDROME [None]
  - PAIN [None]
  - RHINITIS ALLERGIC [None]
  - IMPETIGO [None]
  - ECZEMA [None]
  - DEAFNESS NEUROSENSORY [None]
  - NEUROPATHY PERIPHERAL [None]
  - DIARRHOEA [None]
  - VESTIBULITIS [None]
  - DYSSTASIA [None]
